FAERS Safety Report 8914777 (Version 1)
Quarter: 2012Q4

REPORT INFORMATION
  Report Type: Report from Study
  Country: US (occurrence: US)
  Receive Date: 20121119
  Receipt Date: 20121119
  Transmission Date: 20130627
  Serious: Yes (Hospitalization, Other)
  Sender: FDA-Public Use
  Company Number: US-ABBOTT-12P-163-1007558-00

PATIENT
  Age: 41 Year
  Sex: Female

DRUGS (1)
  1. HUMIRA [Suspect]
     Indication: CROHN^S DISEASE
     Dates: start: 20100917

REACTIONS (4)
  - Enterovesical fistula [Not Recovered/Not Resolved]
  - Abdominal pain [Recovered/Resolved]
  - Procedural pain [Recovering/Resolving]
  - Crohn^s disease [Unknown]
